FAERS Safety Report 7551390-2 (Version None)
Quarter: 2011Q2

REPORT INFORMATION
  Report Type: 
  Country: None (occurrence: None)
  Receive Date: 20110616
  Receipt Date: 20110527
  Transmission Date: 20111010
  Serious: No
  Sender: FDA-Public Use
  Company Number: US-B.I. PHARMACEUTICALS,INC./RIDGEFIELD-2011-BP-14208BP

PATIENT
  Age: 81 Year
  Sex: Male

DRUGS (7)
  1. LOSARTAN POTASSIUM [Concomitant]
     Indication: HYPERTENSION
     Route: 048
     Dates: start: 20080101
  2. TRAMADOL HCL [Concomitant]
     Indication: BACK PAIN
     Route: 048
     Dates: start: 20110101
  3. PRADAXA [Suspect]
     Indication: ATRIAL FIBRILLATION
     Dosage: 300 MG
     Route: 048
     Dates: start: 20110501
  4. DILTIAZEM [Concomitant]
     Indication: HYPERTENSION
     Route: 048
     Dates: start: 20080101
  5. GLIPIZIDE [Concomitant]
     Indication: TYPE 2 DIABETES MELLITUS
     Route: 048
     Dates: start: 19970101
  6. OMEPRAZOLE [Concomitant]
     Indication: ABDOMINAL DISCOMFORT
     Route: 048
     Dates: start: 19970101
  7. METFORMIN HCL [Concomitant]
     Indication: TYPE 2 DIABETES MELLITUS
     Route: 048
     Dates: start: 19970101

REACTIONS (1)
  - LACERATION [None]
